FAERS Safety Report 14498212 (Version 3)
Quarter: 2018Q1

REPORT INFORMATION
  Report Type: Spontaneous
  Country: US (occurrence: US)
  Receive Date: 20180207
  Receipt Date: 20180218
  Transmission Date: 20180509
  Serious: Yes (Life-Threatening, Hospitalization, Other)
  Sender: FDA-Public Use
  Company Number: US-BEH-2018087439

PATIENT
  Age: 21 Year
  Sex: Female

DRUGS (5)
  1. HYDROCODONE [Concomitant]
     Active Substance: HYDROCODONE
  2. HAEGARDA [Suspect]
     Active Substance: HUMAN C1-ESTERASE INHIBITOR
     Indication: ANGIOEDEMA
  3. HAEGARDA [Suspect]
     Active Substance: HUMAN C1-ESTERASE INHIBITOR
     Indication: HEREDITARY ANGIOEDEMA
     Dosage: 3000 IU, BIW (EVERY 3-4 DAYS)
     Route: 058
     Dates: start: 20170816
  4. PHENERGAN [Concomitant]
     Active Substance: PROMETHAZINE HYDROCHLORIDE
  5. HAEGARDA [Suspect]
     Active Substance: HUMAN C1-ESTERASE INHIBITOR
     Indication: PROPHYLAXIS

REACTIONS (16)
  - Asthenia [Recovering/Resolving]
  - Chills [Recovering/Resolving]
  - Speech disorder [Recovering/Resolving]
  - Swelling face [Recovering/Resolving]
  - Pallor [Recovering/Resolving]
  - Hereditary angioedema [Recovering/Resolving]
  - Vomiting [Recovering/Resolving]
  - Hereditary angioedema [Recovered/Resolved]
  - Pain [Recovering/Resolving]
  - Acute sinusitis [Not Recovered/Not Resolved]
  - Dizziness [Recovering/Resolving]
  - Erythema marginatum [Recovering/Resolving]
  - Fatigue [Unknown]
  - Dysstasia [Recovering/Resolving]
  - Abdominal distension [Recovering/Resolving]
  - Sinus headache [Not Recovered/Not Resolved]

NARRATIVE: CASE EVENT DATE: 20180128
